APPROVED DRUG PRODUCT: IRBESARTAN
Active Ingredient: IRBESARTAN
Strength: 300MG
Dosage Form/Route: TABLET;ORAL
Application: A202910 | Product #003 | TE Code: AB
Applicant: HETERO LABS LTD UNIT V
Approved: Sep 27, 2012 | RLD: No | RS: No | Type: RX